FAERS Safety Report 20059599 (Version 1)
Quarter: 2021Q4

REPORT INFORMATION
  Report Type: Spontaneous
  Country: US (occurrence: US)
  Receive Date: 20211111
  Receipt Date: 20211111
  Transmission Date: 20220303
  Serious: No
  Sender: FDA-Public Use
  Company Number: US-BAUSCH-BL-2021-036905

PATIENT
  Age: 78 Year
  Sex: Female

DRUGS (7)
  1. LATANOPROST [Suspect]
     Active Substance: LATANOPROST
     Indication: Glaucoma
     Dosage: USING FOR THE PAST 4 TO 5 YEARS, ONE DROP IN EACH EYE ONCE NIGHTLY.
     Route: 047
  2. LASIX [Concomitant]
     Active Substance: FUROSEMIDE
  3. WARFARIN [Concomitant]
     Active Substance: WARFARIN
  4. METOPROLOL [Concomitant]
     Active Substance: METOPROLOL
  5. SPIRONOLACTONE [Concomitant]
     Active Substance: SPIRONOLACTONE
  6. LOSARTAN [Concomitant]
     Active Substance: LOSARTAN
  7. ATORVASTATIN [Concomitant]
     Active Substance: ATORVASTATIN

REACTIONS (4)
  - Product closure removal difficult [Unknown]
  - Product delivery mechanism issue [Unknown]
  - Product quality issue [Unknown]
  - Product dose omission issue [Unknown]

NARRATIVE: CASE EVENT DATE: 20210101
